FAERS Safety Report 25571176 (Version 2)
Quarter: 2025Q3

REPORT INFORMATION
  Report Type: Spontaneous
  Country: EU (occurrence: EU)
  Receive Date: 20250717
  Receipt Date: 20250911
  Transmission Date: 20251020
  Serious: Yes (Hospitalization)
  Sender: ROCHE
  Company Number: None

PATIENT
  Age: 86 Year
  Sex: Female
  Weight: 48.6 kg

DRUGS (3)
  1. ERIVEDGE [Suspect]
     Active Substance: VISMODEGIB
     Indication: Basal cell carcinoma
     Dosage: 150 MG 1 JOUR SUR 3
     Route: 048
     Dates: start: 20250307, end: 20250409
  2. ERIVEDGE [Suspect]
     Active Substance: VISMODEGIB
     Dosage: 150 MG 1 JOUR SUR 2
     Route: 048
     Dates: start: 20250410, end: 20250612
  3. ESOMEPRAZOLE [Suspect]
     Active Substance: ESOMEPRAZOLE
     Indication: Hiatus hernia
     Route: 048
     Dates: start: 2022, end: 20250612

REACTIONS (2)
  - Hyponatraemia [Recovered/Resolved]
  - Dysgeusia [Recovering/Resolving]

NARRATIVE: CASE EVENT DATE: 20250601
